FAERS Safety Report 9964222 (Version 1)
Quarter: 2014Q1

REPORT INFORMATION
  Report Type: Spontaneous
  Country: US (occurrence: US)
  Receive Date: 20140305
  Receipt Date: 20140305
  Transmission Date: 20141002
  Serious: Yes (Other)
  Sender: FDA-Public Use
  Company Number: US-ASTRAZENECA-2014SE13186

PATIENT
  Age: 30902 Day
  Sex: Female
  Weight: 53.5 kg

DRUGS (8)
  1. ATENOLOL [Suspect]
     Indication: HYPERTENSION
     Dates: start: 20140130
  2. LISINOPRIL [Suspect]
     Indication: HYPERTENSION
     Route: 048
  3. NAPROXYN [Concomitant]
  4. COD LIVER OIL [Concomitant]
  5. UNKNOWN EYE DROPS [Concomitant]
  6. ASPIRIN [Concomitant]
  7. VITAMIN C [Concomitant]
  8. SUTENT [Concomitant]

REACTIONS (5)
  - Epistaxis [Not Recovered/Not Resolved]
  - Sinusitis [Recovered/Resolved]
  - Hypertension [Unknown]
  - Dizziness [Unknown]
  - Feeling abnormal [Unknown]
